FAERS Safety Report 4907657-7 (Version None)
Quarter: 2006Q1

REPORT INFORMATION
  Report Type: 
  Country: None (occurrence: None)
  Receive Date: 20060208
  Receipt Date: 20060208
  Transmission Date: 20060701
  Serious: Yes (Death, Hospitalization)
  Sender: FDA-Public Use
  Company Number: None

PATIENT
  Sex: Female
  Weight: 57.61 kg

DRUGS (2)
  1. CARBOPLATIN [Suspect]
     Indication: NON-SMALL CELL LUNG CANCER
     Dosage: 612 MG
     Dates: end: 20040420
  2. TAXOL [Suspect]
     Dosage: 320 MG
     Dates: end: 20040420

REACTIONS (4)
  - ATELECTASIS [None]
  - DISEASE PROGRESSION [None]
  - PLEURAL DISORDER [None]
  - PLEURAL EFFUSION [None]
